FAERS Safety Report 12141338 (Version 1)
Quarter: 2016Q1

REPORT INFORMATION
  Report Type: Spontaneous
  Country: US (occurrence: US)
  Receive Date: 20160303
  Receipt Date: 20160303
  Transmission Date: 20160526
  Serious: Yes (Other)
  Sender: FDA-Public Use
  Company Number: US-ABBVIE-15P-163-1512903-00

PATIENT
  Age: 53 Year
  Sex: Male

DRUGS (1)
  1. ANDROGEL [Suspect]
     Active Substance: TESTOSTERONE
     Indication: BLOOD TESTOSTERONE DECREASED
     Route: 061
     Dates: start: 201212, end: 201401

REACTIONS (8)
  - Impaired work ability [Unknown]
  - Economic problem [Unknown]
  - Disability [Unknown]
  - Cerebrovascular accident [Unknown]
  - Pain [Unknown]
  - Balance disorder [Unknown]
  - Transient ischaemic attack [Unknown]
  - Injury [Unknown]

NARRATIVE: CASE EVENT DATE: 20130127
